FAERS Safety Report 11708109 (Version 2)
Quarter: 2015Q4

REPORT INFORMATION
  Report Type: Spontaneous
  Country: US (occurrence: US)
  Receive Date: 20151104
  Receipt Date: 20151110
  Transmission Date: 20160304
  Serious: No
  Sender: FDA-Public Use
  Company Number: US-ELI_LILLY_AND_COMPANY-US201102006885

PATIENT
  Age: 84 Year
  Sex: Female

DRUGS (6)
  1. FORTEO [Suspect]
     Active Substance: TERIPARATIDE
     Dosage: 20 UG, QD
     Route: 065
  2. FORTEO [Suspect]
     Active Substance: TERIPARATIDE
     Dosage: 20 UG, QD
     Route: 065
  3. FORTEO [Suspect]
     Active Substance: TERIPARATIDE
     Indication: OSTEOPOROSIS
     Dosage: 20 UG, QD
     Route: 065
     Dates: start: 20110205
  4. FORTEO [Suspect]
     Active Substance: TERIPARATIDE
     Dosage: 20 UG, QD
     Route: 065
  5. FORTEO [Suspect]
     Active Substance: TERIPARATIDE
     Dosage: 20 UG, QD
     Route: 065
  6. FORTEO [Suspect]
     Active Substance: TERIPARATIDE
     Dosage: 20 UG, QD
     Route: 065

REACTIONS (23)
  - Nasopharyngitis [Unknown]
  - Influenza like illness [Not Recovered/Not Resolved]
  - Sensory disturbance [Unknown]
  - Abnormal sensation in eye [Unknown]
  - Pneumonia [Unknown]
  - Cardiac murmur [Not Recovered/Not Resolved]
  - Pollakiuria [Unknown]
  - Aortic valve disease [Unknown]
  - Needle track marks [Unknown]
  - Injection site erythema [Unknown]
  - Headache [Not Recovered/Not Resolved]
  - Rash pruritic [Unknown]
  - Injection site bruising [Unknown]
  - Visual acuity reduced [Unknown]
  - Fatigue [Not Recovered/Not Resolved]
  - Skin discolouration [Unknown]
  - Nausea [Not Recovered/Not Resolved]
  - Nasal congestion [Not Recovered/Not Resolved]
  - Heart rate decreased [Unknown]
  - Injection site pain [Not Recovered/Not Resolved]
  - Nasal congestion [Unknown]
  - Contusion [Unknown]
  - Dizziness [Unknown]

NARRATIVE: CASE EVENT DATE: 20110205
